FAERS Safety Report 14630261 (Version 2)
Quarter: 2018Q2

REPORT INFORMATION
  Report Type: Report from Study
  Country: IL (occurrence: IL)
  Receive Date: 20180313
  Receipt Date: 20180521
  Transmission Date: 20180711
  Serious: Yes (Hospitalization, Disabling, Other)
  Sender: FDA-Public Use
  Company Number: PHHY2018IL036492

PATIENT
  Age: 78 Year
  Sex: Female

DRUGS (1)
  1. COSENTYX [Suspect]
     Active Substance: SECUKINUMAB
     Indication: PSORIATIC ARTHROPATHY
     Dosage: UNK UNK, QMO
     Route: 058
     Dates: start: 20180103

REACTIONS (5)
  - Aphasia [Recovering/Resolving]
  - Arrhythmia [Unknown]
  - Cerebrovascular accident [Recovered/Resolved]
  - Hemiplegia [Recovering/Resolving]
  - Blood pressure abnormal [Unknown]

NARRATIVE: CASE EVENT DATE: 20180227
